FAERS Safety Report 9125175 (Version 1)
Quarter: 2013Q1

REPORT INFORMATION
  Report Type: Spontaneous
  Country: DE (occurrence: DE)
  Receive Date: 20130117
  Receipt Date: 20130117
  Transmission Date: 20140127
  Serious: Yes (Other)
  Sender: FDA-Public Use
  Company Number: DE-ROCHE-1165257

PATIENT
  Sex: Female
  Weight: 73 kg

DRUGS (3)
  1. XELODA [Suspect]
     Indication: PRODUCT USED FOR UNKNOWN INDICATION
     Route: 065
     Dates: start: 20120316, end: 20121210
  2. XGEVA [Concomitant]
     Indication: METASTASES TO BONE
     Route: 065
     Dates: start: 201210
  3. FASLODEX [Concomitant]
     Indication: METASTASES TO BONE
     Route: 065
     Dates: start: 201211

REACTIONS (2)
  - Palmar-plantar erythrodysaesthesia syndrome [Recovering/Resolving]
  - Visual impairment [Recovering/Resolving]
